FAERS Safety Report 6996817-X (Version None)
Quarter: 2010Q3

REPORT INFORMATION
  Report Type: 
  Country: None (occurrence: None)
  Receive Date: 20100918
  Receipt Date: 20090710
  Transmission Date: 20110219
  Serious: No
  Sender: FDA-Public Use
  Company Number: US-WYE-H10112109

PATIENT
  Sex: Female
  Weight: 93.98 kg

DRUGS (2)
  1. EFFEXOR XR [Suspect]
     Indication: DEPRESSION
     Route: 048
     Dates: start: 20080101
  2. DROSPIRENONE [Concomitant]

REACTIONS (5)
  - ALOPECIA [None]
  - CONSTIPATION [None]
  - SLUGGISHNESS [None]
  - THYROID FUNCTION TEST ABNORMAL [None]
  - WEIGHT INCREASED [None]
